FAERS Safety Report 8825363 (Version 2)
Quarter: 2014Q3

REPORT INFORMATION
  Report Type: Report from Study
  Country: US (occurrence: US)
  Receive Date: 20121004
  Receipt Date: 20140902
  Transmission Date: 20150326
  Serious: Yes (Hospitalization, Other)
  Sender: FDA-Public Use
  Company Number: US-ROCHE-1131662

PATIENT
  Sex: Female

DRUGS (16)
  1. RITUXAN [Suspect]
     Active Substance: RITUXIMAB
     Route: 065
     Dates: start: 20000630
  2. BENADRYL [Concomitant]
     Active Substance: DIPHENHYDRAMINE HYDROCHLORIDE
     Dosage: 50/2
     Route: 065
     Dates: start: 20000616
  3. SYNTHROID [Concomitant]
     Active Substance: LEVOTHYROXINE SODIUM
     Route: 065
  4. RITUXAN [Suspect]
     Active Substance: RITUXIMAB
     Indication: WALDENSTROM^S MACROGLOBULINAEMIA
     Route: 065
     Dates: start: 20000616
  5. ZOLOFT [Concomitant]
     Active Substance: SERTRALINE HYDROCHLORIDE
  6. RITUXAN [Suspect]
     Active Substance: RITUXIMAB
     Route: 065
     Dates: start: 20000623
  7. BENADRYL [Concomitant]
     Active Substance: DIPHENHYDRAMINE HYDROCHLORIDE
     Dosage: 50/2
     Route: 065
     Dates: start: 20000630
  8. LEVAQUIN [Concomitant]
     Active Substance: LEVOFLOXACIN
  9. AMPICILINA [Concomitant]
     Active Substance: AMPICILLIN
  10. BENADRYL [Concomitant]
     Active Substance: DIPHENHYDRAMINE HYDROCHLORIDE
     Dosage: 50/2
     Route: 065
     Dates: start: 20000712
  11. TYLENOL [Concomitant]
     Active Substance: ACETAMINOPHEN
     Dosage: 50/2
     Route: 065
     Dates: start: 20000616
  12. TYLENOL [Concomitant]
     Active Substance: ACETAMINOPHEN
     Dosage: 50/2
     Route: 065
     Dates: start: 20000712
  13. RITUXAN [Suspect]
     Active Substance: RITUXIMAB
     Route: 042
  14. BENADRYL [Concomitant]
     Active Substance: DIPHENHYDRAMINE HYDROCHLORIDE
     Dosage: 50/2
     Route: 065
     Dates: start: 20000623
  15. TYLENOL [Concomitant]
     Active Substance: ACETAMINOPHEN
     Dosage: 50/2
     Route: 065
     Dates: start: 20000630
  16. TYLENOL [Concomitant]
     Active Substance: ACETAMINOPHEN
     Dosage: 50/2
     Route: 065
     Dates: start: 20000623

REACTIONS (6)
  - Pyuria [Unknown]
  - Hypothyroidism [Unknown]
  - Dementia [Unknown]
  - Blood culture positive [Unknown]
  - Fall [Unknown]
  - Partial seizures [Unknown]
